FAERS Safety Report 9515057 (Version 1)
Quarter: 2013Q3

REPORT INFORMATION
  Report Type: Spontaneous
  Country: FR (occurrence: FR)
  Receive Date: 20130911
  Receipt Date: 20130911
  Transmission Date: 20140515
  Serious: Yes (Hospitalization)
  Sender: FDA-Public Use
  Company Number: FR-JNJFOC-20130901732

PATIENT
  Age: 23 Year
  Sex: Male

DRUGS (4)
  1. RISPERDALORO [Suspect]
     Indication: PRODUCT USED FOR UNKNOWN INDICATION
     Route: 048
     Dates: start: 200904
  2. TERCIAN [Suspect]
     Indication: PRODUCT USED FOR UNKNOWN INDICATION
     Dosage: 1/2 TABLET IN THE MORNING AND IN MIDDAY AND 1 TABLET IN THE EVENING (50 MG PER DAY)
     Route: 048
     Dates: start: 200904
  3. FORLAX [Concomitant]
     Indication: CONSTIPATION
     Route: 065
     Dates: start: 20090513
  4. MICROLAX (SODIUM CITRATE, SODIUM LAURYL SULFOACETATE) [Concomitant]
     Indication: CONSTIPATION
     Route: 065

REACTIONS (1)
  - Subileus [Recovered/Resolved]
